FAERS Safety Report 5191953-5 (Version None)
Quarter: 2006Q4

REPORT INFORMATION
  Report Type: 
  Country: None (occurrence: None)
  Receive Date: 20061227
  Receipt Date: 20061220
  Transmission Date: 20070319
  Serious: Yes (Other)
  Sender: FDA-Public Use
  Company Number: CL-BRISTOL-MYERS SQUIBB COMPANY-13620653

PATIENT
  Age: 75 Year
  Sex: Male

DRUGS (6)
  1. TAXOL [Suspect]
     Indication: LUNG NEOPLASM MALIGNANT
     Route: 042
  2. CARBOPLATIN [Suspect]
     Indication: LUNG NEOPLASM MALIGNANT
     Route: 042
  3. DEXAMETHASONE [Concomitant]
     Indication: PREMEDICATION
     Route: 042
  4. CHLORPHENIRAMINE MALEATE [Concomitant]
     Indication: PREMEDICATION
     Route: 042
  5. RANITIDINE [Concomitant]
     Indication: PREMEDICATION
     Route: 042
  6. ONDANSETRON HCL [Concomitant]
     Indication: PREMEDICATION
     Route: 042

REACTIONS (5)
  - CYANOSIS [None]
  - DYSPNOEA [None]
  - HYPERTENSION [None]
  - RESTLESSNESS [None]
  - TACHYCARDIA [None]
